FAERS Safety Report 11915952 (Version 6)
Quarter: 2017Q1

REPORT INFORMATION
  Report Type: Report from Study
  Country: US (occurrence: US)
  Receive Date: 20160114
  Receipt Date: 20170217
  Transmission Date: 20170428
  Serious: Yes (Hospitalization)
  Sender: FDA-Public Use
  Company Number: PHHO2016US000586

PATIENT
  Age: 80 Year
  Sex: Male
  Weight: 101.13 kg

DRUGS (3)
  1. METHOTREXATE. [Suspect]
     Active Substance: METHOTREXATE
     Indication: PSORIATIC ARTHROPATHY
     Dosage: 2.5 MG, Q5W
     Route: 065
     Dates: start: 20050719, end: 20151220
  2. AIN457 [Suspect]
     Active Substance: SECUKINUMAB
     Dosage: 75 MG, Q4W
     Route: 065
     Dates: end: 20170117
  3. AIN457 [Suspect]
     Active Substance: SECUKINUMAB
     Indication: PSORIATIC ARTHROPATHY
     Dosage: 75 MG, UNK
     Route: 058
     Dates: start: 20140925, end: 20151215

REACTIONS (2)
  - Diverticulitis [Recovering/Resolving]
  - Diverticulitis [Recovering/Resolving]

NARRATIVE: CASE EVENT DATE: 20151217
